FAERS Safety Report 5075606-X (Version None)
Quarter: 2006Q3

REPORT INFORMATION
  Report Type: 
  Country: None (occurrence: None)
  Receive Date: 20060807
  Receipt Date: 20060807
  Transmission Date: 20061208
  Serious: No
  Sender: FDA-Public Use
  Company Number: None

PATIENT
  Age: 61 Year
  Sex: Male
  Weight: 99.7913 kg

DRUGS (1)
  1. ALLANZYME 650 OINTMENT  ALLAN PHARMACEUTICAL [Suspect]
     Indication: WOUND TREATMENT
     Dosage: DAILY
     Dates: start: 20060804, end: 20060804

REACTIONS (2)
  - PHARMACEUTICAL PRODUCT COMPLAINT [None]
  - WOUND HAEMORRHAGE [None]
